FAERS Safety Report 10421720 (Version 3)
Quarter: 2014Q3

REPORT INFORMATION
  Report Type: Spontaneous
  Country: DE (occurrence: DE)
  Receive Date: 20140901
  Receipt Date: 20140922
  Transmission Date: 20150326
  Serious: Yes (Other)
  Sender: FDA-Public Use
  Company Number: DE-SHIRE-DE201403752

PATIENT
  Sex: Male
  Weight: 40.9 kg

DRUGS (5)
  1. ELVANSE [Suspect]
     Active Substance: LISDEXAMFETAMINE DIMESYLATE
     Indication: ATTENTION DEFICIT/HYPERACTIVITY DISORDER
     Dosage: 50 MG, 1X/DAY:QD  (ON SCHOOL DAYS)
     Route: 048
     Dates: start: 20140508, end: 20140528
  2. ELVANSE [Suspect]
     Active Substance: LISDEXAMFETAMINE DIMESYLATE
     Dosage: 30 MG, UNKNOWN
     Route: 048
     Dates: start: 2014, end: 2014
  3. ELVANSE [Suspect]
     Active Substance: LISDEXAMFETAMINE DIMESYLATE
     Dosage: 15 MG, UNKNOWN
     Route: 048
     Dates: start: 2014, end: 2014
  4. ELVANSE [Suspect]
     Active Substance: LISDEXAMFETAMINE DIMESYLATE
     Dosage: 30 MG, UNKNOWN
     Route: 048
     Dates: start: 20140412, end: 20140507
  5. ELVANSE [Suspect]
     Active Substance: LISDEXAMFETAMINE DIMESYLATE
     Dosage: 30 MG, OTHER (ON WEEKENDS AND HOLIDAYS)
     Route: 048
     Dates: start: 20140508, end: 2014

REACTIONS (11)
  - Social avoidant behaviour [Recovered/Resolved]
  - Suicidal ideation [Recovered/Resolved]
  - Mood swings [Recovered/Resolved]
  - Aggression [Recovered/Resolved]
  - Impulsive behaviour [Recovered/Resolved]
  - Disturbance in attention [Recovered/Resolved]
  - Negativism [Recovered/Resolved]
  - Palpitations [Recovered/Resolved]
  - Drug ineffective [Recovered/Resolved]
  - Drug prescribing error [Recovered/Resolved]
  - Depressed mood [Recovered/Resolved]

NARRATIVE: CASE EVENT DATE: 2014
